FAERS Safety Report 9937424 (Version 1)
Quarter: 2014Q1

REPORT INFORMATION
  Report Type: Spontaneous
  Country: US (occurrence: US)
  Receive Date: 20140303
  Receipt Date: 20140303
  Transmission Date: 20141002
  Serious: No
  Sender: FDA-Public Use
  Company Number: US-009507513-1402USA013414

PATIENT
  Age: 29 Year
  Sex: Male

DRUGS (8)
  1. INVANZ [Suspect]
     Indication: WOUND
     Dosage: 1 G, QD
     Route: 042
     Dates: start: 201312
  2. FERROUS SULFATE [Concomitant]
  3. DILAUDID [Concomitant]
  4. LORTAB [Concomitant]
  5. CARVEDILOL [Concomitant]
  6. IBUPROFEN [Concomitant]
  7. PIROXICAM [Concomitant]
  8. VITAMINS (UNSPECIFIED) [Concomitant]

REACTIONS (2)
  - Skin lesion [Not Recovered/Not Resolved]
  - Wound [Not Recovered/Not Resolved]
